FAERS Safety Report 24388385 (Version 2)
Quarter: 2025Q1

REPORT INFORMATION
  Report Type: Spontaneous
  Country: US (occurrence: US)
  Receive Date: 20241002
  Receipt Date: 20250317
  Transmission Date: 20250409
  Serious: No
  Sender: BIOMARIN
  Company Number: US-SA-2024SA276958

PATIENT

DRUGS (2)
  1. LARONIDASE [Suspect]
     Active Substance: LARONIDASE
     Indication: Mucopolysaccharidosis I
     Dosage: 26.1 (UNITS NOT PROVIDED), QW
     Route: 042
  2. LARONIDASE [Suspect]
     Active Substance: LARONIDASE
     Dosage: 26.1 (UNITS NOT PROVIDED), QW
     Route: 042
     Dates: start: 200903

REACTIONS (2)
  - Visual impairment [Not Recovered/Not Resolved]
  - Ocular discomfort [Not Recovered/Not Resolved]
